FAERS Safety Report 7816232-6 (Version None)
Quarter: 2011Q4

REPORT INFORMATION
  Report Type: 
  Country: None (occurrence: None)
  Receive Date: 20111016
  Receipt Date: 20110928
  Transmission Date: 20120403
  Serious: Yes (Life-Threatening)
  Sender: FDA-Public Use
  Company Number: PHHY2011IT90526

PATIENT
  Sex: Female

DRUGS (1)
  1. ZINADIUR [Suspect]
     Indication: HYPERTENSION
     Route: 048
     Dates: start: 20110916, end: 20110916

REACTIONS (1)
  - ANAPHYLACTIC SHOCK [None]
